FAERS Safety Report 5146798-9 (Version None)
Quarter: 2006Q4

REPORT INFORMATION
  Report Type: 
  Country: None (occurrence: None)
  Receive Date: 20061102
  Receipt Date: 20061020
  Transmission Date: 20070319
  Serious: Yes (Other)
  Sender: FDA-Public Use
  Company Number: 2006PV023730

PATIENT
  Age: 46 Year
  Sex: Female

DRUGS (5)
  1. BYETTA [Suspect]
     Dosage: 5 MCG; SC
     Route: 058
     Dates: start: 20060915, end: 20061002
  2. METFORMIN [Concomitant]
  3. ZOMIG [Concomitant]
  4. TOPAMAX [Concomitant]
  5. LAMICTAL [Concomitant]

REACTIONS (3)
  - ANTICONVULSANT DRUG LEVEL BELOW THERAPEUTIC [None]
  - DIARRHOEA [None]
  - GRAND MAL CONVULSION [None]
